FAERS Safety Report 6125250-8 (Version None)
Quarter: 2009Q1

REPORT INFORMATION
  Report Type: 
  Country: None (occurrence: None)
  Receive Date: 20090319
  Receipt Date: 20090319
  Transmission Date: 20090719
  Serious: Yes (Other)
  Sender: FDA-Public Use
  Company Number: None

PATIENT
  Age: 60 Year
  Sex: Male
  Weight: 198.9 kg

DRUGS (1)
  1. NALTREXONE HYDROCHLORIDE [Suspect]
     Indication: MENTAL DISORDER
     Dosage: 380 MG OTHER IM
     Route: 030
     Dates: start: 20080904

REACTIONS (1)
  - INJECTION SITE REACTION [None]
